FAERS Safety Report 21561713 (Version 2)
Quarter: 2022Q4

REPORT INFORMATION
  Report Type: Spontaneous
  Country: US (occurrence: US)
  Receive Date: 20221107
  Receipt Date: 20221216
  Transmission Date: 20230113
  Serious: Yes (Other)
  Sender: FDA-Public Use
  Company Number: US-PFIZER INC-202101467046

PATIENT
  Age: 78 Year
  Sex: Male

DRUGS (1)
  1. EUCRISA [Suspect]
     Active Substance: CRISABOROLE
     Indication: Pruritus
     Dosage: UNK, AS NEEDED (APPLY TO AFFECTED AREAS ONCE TO TWICE DAILY AS NEEDED)
     Route: 061

REACTIONS (4)
  - Seizure [Unknown]
  - Disease recurrence [Unknown]
  - Off label use [Unknown]
  - Off label use [Unknown]
